FAERS Safety Report 6064858-5 (Version None)
Quarter: 2009Q1

REPORT INFORMATION
  Report Type: 
  Country: None (occurrence: None)
  Receive Date: 20090204
  Receipt Date: 20090121
  Transmission Date: 20090719
  Serious: Yes (Death)
  Sender: FDA-Public Use
  Company Number: US-JNJFOC-20090105869

PATIENT
  Sex: Male
  Weight: 64.41 kg

DRUGS (6)
  1. FENTANYL-75 [Suspect]
     Indication: DRUG USE FOR UNKNOWN INDICATION
     Route: 065
  2. VALIUM [Concomitant]
  3. ELAVIL [Concomitant]
  4. NAPROSYN [Concomitant]
  5. MOTRIN [Concomitant]
  6. ETHANOL [Concomitant]

REACTIONS (1)
  - DEATH [None]
